FAERS Safety Report 7225401-8 (Version None)
Quarter: 2011Q1

REPORT INFORMATION
  Report Type: 
  Country: None (occurrence: None)
  Receive Date: 20110107
  Receipt Date: 20110107
  Transmission Date: 20110831
  Serious: Yes (Other)
  Sender: FDA-Public Use
  Company Number: None

PATIENT
  Sex: Male
  Weight: 70.7 kg

DRUGS (6)
  1. LAMICTAL XR [Concomitant]
  2. TRILEPTAL [Concomitant]
  3. VAGUS NERVE STIMULATION [Concomitant]
  4. LACOSAMIDE [Suspect]
     Indication: CONVULSION
     Dosage: 150 MG ONCE IV BOLUS
     Route: 040
     Dates: start: 20100106, end: 20100106
  5. LAMICTAL XR [Concomitant]
  6. ZOMIG-ZMT [Concomitant]

REACTIONS (4)
  - VOMITING [None]
  - FEELING ABNORMAL [None]
  - FEELING DRUNK [None]
  - NAUSEA [None]
